FAERS Safety Report 5080292-9 (Version None)
Quarter: 2006Q3

REPORT INFORMATION
  Report Type: 
  Country: None (occurrence: None)
  Receive Date: 20060720
  Receipt Date: 20050826
  Transmission Date: 20061208
  Serious: Yes (Other)
  Sender: FDA-Public Use
  Company Number: 2005120327

PATIENT
  Age: 76 Year
  Sex: Male
  Weight: 87.5442 kg

DRUGS (3)
  1. CELEBREX [Suspect]
     Indication: ARTHRITIS
     Dosage: 400 MG (200 MG, 2 IN 1 D), UNKNOWN
  2. VITAMIN B6 [Suspect]
     Indication: ILL-DEFINED DISORDER
  3. PRILOSEC [Concomitant]

REACTIONS (3)
  - ARTHRALGIA [None]
  - DIZZINESS [None]
  - JOINT SWELLING [None]
